FAERS Safety Report 5269730-6 (Version None)
Quarter: 2007Q1

REPORT INFORMATION
  Report Type: 
  Country: None (occurrence: None)
  Receive Date: 20070320
  Receipt Date: 20070309
  Transmission Date: 20070707
  Serious: Yes (Other)
  Sender: FDA-Public Use
  Company Number: ZA-ROCHE-484854

PATIENT
  Age: 73 Year
  Sex: Male

DRUGS (2)
  1. XELODA [Suspect]
     Dosage: PATIENT RECEIVED 1500 MG IN THE MORNING AND 1000 MG IN THE EVENING.
     Route: 048
     Dates: start: 20061215
  2. EFFORTIL [Suspect]
     Indication: HYPOTENSION
     Route: 048
     Dates: start: 20060615

REACTIONS (2)
  - BALANITIS [None]
  - PALMAR-PLANTAR ERYTHRODYSAESTHESIA SYNDROME [None]
